FAERS Safety Report 7655885-2 (Version None)
Quarter: 2011Q3

REPORT INFORMATION
  Report Type: 
  Country: None (occurrence: None)
  Receive Date: 20110729
  Receipt Date: 20110725
  Transmission Date: 20111222
  Serious: Yes (Death)
  Sender: FDA-Public Use
  Company Number: 2011SP034795

PATIENT
  Age: 50 Year
  Sex: Female

DRUGS (4)
  1. SAPHRIS [Suspect]
     Indication: PRODUCT USED FOR UNKNOWN INDICATION
     Dosage: 10 MG, QD, SL
     Route: 060
     Dates: start: 20110301, end: 20110301
  2. PREDNISONE [Concomitant]
  3. LUNESTA [Concomitant]
  4. ATIVAN [Concomitant]

REACTIONS (5)
  - OEDEMA PERIPHERAL [None]
  - CARDIAC DISORDER [None]
  - DYSPNOEA [None]
  - JOINT SWELLING [None]
  - DIZZINESS [None]
